FAERS Safety Report 25013532 (Version 2)
Quarter: 2025Q1

REPORT INFORMATION
  Report Type: Spontaneous
  Country: US (occurrence: US)
  Receive Date: 20250226
  Receipt Date: 20250324
  Transmission Date: 20250408
  Serious: No
  Sender: UCB
  Company Number: US-UCBSA-2024061109

PATIENT
  Age: 43 Year
  Sex: Female

DRUGS (33)
  1. BRIVARACETAM [Suspect]
     Active Substance: BRIVARACETAM
     Indication: Generalised tonic-clonic seizure
     Dosage: 50 MILLIGRAM, 2X/DAY (BID)
  2. BRIVARACETAM [Suspect]
     Active Substance: BRIVARACETAM
     Indication: Petit mal epilepsy
  3. BRIVARACETAM [Suspect]
     Active Substance: BRIVARACETAM
     Indication: Off label use
  4. LEVETIRACETAM [Suspect]
     Active Substance: LEVETIRACETAM
     Indication: Generalised tonic-clonic seizure
  5. LEVETIRACETAM [Suspect]
     Active Substance: LEVETIRACETAM
     Indication: Petit mal epilepsy
  6. LEVETIRACETAM [Suspect]
     Active Substance: LEVETIRACETAM
     Indication: Off label use
  7. LACOSAMIDE [Suspect]
     Active Substance: LACOSAMIDE
     Indication: Generalised tonic-clonic seizure
  8. LACOSAMIDE [Suspect]
     Active Substance: LACOSAMIDE
     Indication: Petit mal epilepsy
  9. LACOSAMIDE [Suspect]
     Active Substance: LACOSAMIDE
     Indication: Off label use
  10. LAMOTRIGINE [Suspect]
     Active Substance: LAMOTRIGINE
     Indication: Generalised tonic-clonic seizure
  11. LAMOTRIGINE [Suspect]
     Active Substance: LAMOTRIGINE
     Indication: Petit mal epilepsy
  12. CENOBAMATE [Suspect]
     Active Substance: CENOBAMATE
     Indication: Partial seizures
  13. CENOBAMATE [Suspect]
     Active Substance: CENOBAMATE
     Indication: Epilepsy
  14. VALPROIC ACID [Suspect]
     Active Substance: VALPROIC ACID
     Indication: Generalised tonic-clonic seizure
  15. VALPROIC ACID [Suspect]
     Active Substance: VALPROIC ACID
     Indication: Petit mal epilepsy
  16. TOPIRAMATE [Suspect]
     Active Substance: TOPIRAMATE
     Indication: Generalised tonic-clonic seizure
  17. TOPIRAMATE [Suspect]
     Active Substance: TOPIRAMATE
     Indication: Petit mal epilepsy
  18. ZONISAMIDE [Suspect]
     Active Substance: ZONISAMIDE
     Indication: Petit mal epilepsy
  19. ZONISAMIDE [Suspect]
     Active Substance: ZONISAMIDE
     Indication: Generalised tonic-clonic seizure
  20. CLOBAZAM [Suspect]
     Active Substance: CLOBAZAM
     Indication: Generalised tonic-clonic seizure
  21. CLOBAZAM [Suspect]
     Active Substance: CLOBAZAM
     Indication: Petit mal epilepsy
  22. CLONAZEPAM [Suspect]
     Active Substance: CLONAZEPAM
     Indication: Generalised tonic-clonic seizure
  23. CLONAZEPAM [Suspect]
     Active Substance: CLONAZEPAM
     Indication: Petit mal epilepsy
  24. OXCARBAZEPINE [Suspect]
     Active Substance: OXCARBAZEPINE
     Indication: Petit mal epilepsy
  25. OXCARBAZEPINE [Suspect]
     Active Substance: OXCARBAZEPINE
     Indication: Generalised tonic-clonic seizure
  26. PHENYTOIN [Suspect]
     Active Substance: PHENYTOIN
     Indication: Petit mal epilepsy
  27. PHENYTOIN [Suspect]
     Active Substance: PHENYTOIN
     Indication: Generalised tonic-clonic seizure
  28. RUFINAMIDE [Suspect]
     Active Substance: RUFINAMIDE
     Indication: Generalised tonic-clonic seizure
  29. RUFINAMIDE [Suspect]
     Active Substance: RUFINAMIDE
     Indication: Petit mal epilepsy
  30. GABAPENTIN [Suspect]
     Active Substance: GABAPENTIN
     Indication: Petit mal epilepsy
  31. GABAPENTIN [Suspect]
     Active Substance: GABAPENTIN
     Indication: Generalised tonic-clonic seizure
  32. FELBAMATE [Suspect]
     Active Substance: FELBAMATE
     Indication: Petit mal epilepsy
  33. FELBAMATE [Suspect]
     Active Substance: FELBAMATE
     Indication: Generalised tonic-clonic seizure

REACTIONS (8)
  - Dizziness [Unknown]
  - Sedation [Unknown]
  - Vision blurred [Unknown]
  - Nausea [Unknown]
  - Diplopia [Unknown]
  - Fatigue [Unknown]
  - Dysarthria [Unknown]
  - Off label use [Unknown]
